FAERS Safety Report 15600719 (Version 2)
Quarter: 2018Q4

REPORT INFORMATION
  Report Type: Spontaneous
  Country: RO (occurrence: RO)
  Receive Date: 20181109
  Receipt Date: 20181121
  Transmission Date: 20190205
  Serious: Yes (Death, Other)
  Sender: FDA-Public Use
  Company Number: RO-GEHC-2018CSU004492

PATIENT

DRUGS (1)
  1. OMNIPAQUE [Suspect]
     Active Substance: IOHEXOL
     Indication: BREAST NEOPLASM
     Dosage: 115 ML, SINGLE
     Route: 042
     Dates: start: 20181029, end: 20181029

REACTIONS (3)
  - Cardiogenic shock [Unknown]
  - Acute pulmonary oedema [Unknown]
  - Cardio-respiratory arrest [Fatal]

NARRATIVE: CASE EVENT DATE: 20181029
